FAERS Safety Report 25351408 (Version 1)
Quarter: 2025Q2

REPORT INFORMATION
  Report Type: Other
  Country: GB (occurrence: GB)
  Receive Date: 20250523
  Receipt Date: 20250523
  Transmission Date: 20250717
  Serious: Yes (Hospitalization, Other)
  Sender: MACLEODS
  Company Number: GB-002147023-NVSC2025GB055958

PATIENT

DRUGS (12)
  1. ATORVASTATIN [Suspect]
     Active Substance: ATORVASTATIN
     Indication: Product used for unknown indication
     Dosage: UNK, (ONE TO BE TAKEN AT NIGHT),
     Route: 065
     Dates: start: 20250415
  2. TAMSULOSIN [Suspect]
     Active Substance: TAMSULOSIN
     Indication: Product used for unknown indication
     Dosage: UNK, (ONE TO BE TAKEN EACH DAY), (30 CAPSULE)
     Route: 065
     Dates: start: 20250415
  3. CARBAMAZEPINE [Suspect]
     Active Substance: CARBAMAZEPINE
     Indication: Epilepsy
     Dosage: (800 MG IN THE MORNING, 800 MG IN THE EVENING), (224 TABLET)
     Route: 065
  4. FAMOTIDINE [Suspect]
     Active Substance: FAMOTIDINE
     Indication: Product used for unknown indication
     Dosage: UNK (ONE TO BE TAKEN IN THE MORNING) (28 TABLET)
     Route: 065
     Dates: start: 20250415
  5. LACOSAMIDE [Concomitant]
     Active Substance: LACOSAMIDE
     Indication: Product used for unknown indication
     Dosage: (200 MG IN THE MORNING AND 200 MG IN THE NIGHT)
     Route: 065
  6. CLOBAZAM [Concomitant]
     Active Substance: CLOBAZAM
     Indication: Product used for unknown indication
     Dosage: 10 MG (10 MG ONE IN THE MORNING, AND ONE AT NIGHT)
     Route: 065
     Dates: start: 20250415
  7. ACETAMINOPHEN [Concomitant]
     Active Substance: ACETAMINOPHEN
     Indication: Product used for unknown indication
     Route: 065
  8. IBUPROFEN [Concomitant]
     Active Substance: IBUPROFEN
     Indication: Product used for unknown indication
     Route: 065
  9. MAGNESIUM CITRATE [Concomitant]
     Active Substance: MAGNESIUM CITRATE
     Indication: Product used for unknown indication
     Dosage: 2 DOSAGE FORM, TID, (0.1 TABLET) (3 TIMES A DAY)
     Route: 065
  10. SUMATRIPTAN [Concomitant]
     Active Substance: SUMATRIPTAN
     Route: 065
     Dates: start: 20250424
  11. CANDESARTAN [Concomitant]
     Active Substance: CANDESARTAN
     Indication: Product used for unknown indication
     Dosage: 1 DOSAGE FORM, QD (28 TABLET)
     Route: 065
  12. CANDESARTAN [Concomitant]
     Active Substance: CANDESARTAN
     Dosage: (IN THE MORNING. INCREASE DOSE BY 4MG EVERY 4 WEEKS UNTIL ON 16MG DAILY), (28 TABLET)
     Route: 065
     Dates: start: 20250424

REACTIONS (15)
  - Seizure cluster [Unknown]
  - Convulsions local [Unknown]
  - Seizure [Unknown]
  - Urinary retention [Unknown]
  - Renal disorder [Unknown]
  - Vomiting [Unknown]
  - Dysarthria [Unknown]
  - Headache [Unknown]
  - Decreased appetite [Unknown]
  - Aggression [Unknown]
  - Coordination abnormal [Unknown]
  - Eye disorder [Unknown]
  - Migraine [Unknown]
  - Confusional state [Unknown]
  - Vision blurred [Unknown]
